FAERS Safety Report 11248684 (Version 1)
Quarter: 2015Q3

REPORT INFORMATION
  Report Type: Spontaneous
  Country: BE (occurrence: BE)
  Receive Date: 20150708
  Receipt Date: 20150708
  Transmission Date: 20151125
  Serious: Yes (Hospitalization)
  Sender: FDA-Public Use
  Company Number: BE-ABBVIE-15P-013-1421353-00

PATIENT
  Sex: Female

DRUGS (1)
  1. DEPAKINE [Suspect]
     Active Substance: VALPROATE SODIUM
     Indication: EPILEPSY
     Dosage: SOLUTION
     Route: 048
     Dates: start: 201411

REACTIONS (3)
  - Seizure [Unknown]
  - Pyrexia [Unknown]
  - Underdose [Unknown]
